FAERS Safety Report 10863176 (Version 2)
Quarter: 2015Q3

REPORT INFORMATION
  Report Type: Other
  Country: IT (occurrence: IT)
  Receive Date: 20150223
  Receipt Date: 20150708
  Transmission Date: 20151125
  Serious: Yes (Hospitalization)
  Sender: FDA-Public Use
  Company Number: IT-MYLANLABS-2015M1004390

PATIENT

DRUGS (7)
  1. EUTIROX [Concomitant]
     Active Substance: LEVOTHYROXINE SODIUM
     Indication: HYPOTHYROIDISM
  2. SUCRALFATO [Concomitant]
     Indication: PEPTIC ULCER
  3. NITRODERM [Concomitant]
     Active Substance: NITROGLYCERIN
     Indication: CARDIAC DISORDER
  4. CALCIO CARBONATO [Concomitant]
     Indication: CALCIUM DEFICIENCY
  5. PANTOPRAZOLE [Concomitant]
     Active Substance: PANTOPRAZOLE SODIUM
     Indication: PEPTIC ULCER
  6. TICLOPIDINA [Suspect]
     Active Substance: TICLOPIDINE
     Indication: PERIPHERAL ARTERIAL OCCLUSIVE DISEASE
     Dosage: 500 MG, QD
     Route: 048
     Dates: start: 20140203, end: 20140225
  7. LEXOTAN [Concomitant]
     Active Substance: BROMAZEPAM
     Indication: ANXIETY

REACTIONS (3)
  - Thrombocytopenia [Recovered/Resolved]
  - Leukopenia [Recovered/Resolved]
  - Dry gangrene [Recovered/Resolved]

NARRATIVE: CASE EVENT DATE: 20140226
